FAERS Safety Report 6213669-6 (Version None)
Quarter: 2009Q2

REPORT INFORMATION
  Report Type: 
  Country: None (occurrence: None)
  Receive Date: 20090601
  Receipt Date: 20090518
  Transmission Date: 20091009
  Serious: Yes (Hospitalization)
  Sender: FDA-Public Use
  Company Number: 2009S1008792

PATIENT
  Age: 25 Year
  Sex: Female

DRUGS (5)
  1. LAMOTRIGINE [Suspect]
     Indication: EPILEPSY
     Dosage: 25 MG;DAILY
  2. AMOXICILLIN (AMOXICILLIN) (CON.) [Concomitant]
  3. PHENYTOIN (PHENYTOIN) (CON.) [Concomitant]
  4. RABEPRAZOLE (RABEPRAZOLE) (CON.) [Concomitant]
  5. EUGYNON                (EUGYNON /00022701/) [Concomitant]

REACTIONS (12)
  - CARDIAC MURMUR [None]
  - CONJUNCTIVITIS [None]
  - GAMMA-GLUTAMYLTRANSFERASE INCREASED [None]
  - HYPERREFLEXIA [None]
  - LEUKOPENIA [None]
  - MENINGITIS ASEPTIC [None]
  - MENINGITIS VIRAL [None]
  - PERIORBITAL OEDEMA [None]
  - SJOGREN'S SYNDROME [None]
  - TACHYCARDIA [None]
  - THROMBOCYTOPENIA [None]
  - VITH NERVE PARALYSIS [None]
